FAERS Safety Report 24027768 (Version 1)
Quarter: 2024Q2

REPORT INFORMATION
  Report Type: Other
  Country: FR (occurrence: FR)
  Receive Date: 20240628
  Receipt Date: 20240628
  Transmission Date: 20240716
  Serious: Yes (Other)
  Sender: FDA-Public Use
  Company Number: None

PATIENT
  Age: 58 Year
  Sex: Female
  Weight: 45 kg

DRUGS (4)
  1. TACROLIMUS [Suspect]
     Active Substance: TACROLIMUS
     Indication: Hypertension
     Dosage: 11 MG, ONCE DAILY LATELY
     Route: 048
     Dates: start: 200607
  2. ZESTRIL [Suspect]
     Active Substance: LISINOPRIL
     Indication: Hypertension
     Route: 048
     Dates: start: 20231115, end: 20240115
  3. LISINOPRIL [Suspect]
     Active Substance: LISINOPRIL
     Indication: Dyspnoea exertional
     Dosage: 10 MG, ONCE DAILY (5 MG/DAY THEN FROM 24 MAR 2016 10 MG/DAY)
     Route: 048
     Dates: start: 20160304, end: 20231115
  4. MYCOPHENOLATE MOFETIL [Concomitant]
     Active Substance: MYCOPHENOLATE MOFETIL
     Indication: Hypertension
     Dosage: UNK UNK, UNKNOWN FREQ. NR
     Route: 048
     Dates: start: 200607

REACTIONS (2)
  - Angioedema [Recovered/Resolved]
  - Off label use [Unknown]

NARRATIVE: CASE EVENT DATE: 20060701
